FAERS Safety Report 7281763-7 (Version None)
Quarter: 2011Q1

REPORT INFORMATION
  Report Type: 
  Country: None (occurrence: None)
  Receive Date: 20110208
  Receipt Date: 20100322
  Transmission Date: 20110831
  Serious: Yes (Other)
  Sender: FDA-Public Use
  Company Number: US-PFIZER INC-2010038300

PATIENT
  Sex: Female
  Weight: 86.26 kg

DRUGS (7)
  1. SUTENT [Suspect]
     Indication: METASTATIC RENAL CELL CARCINOMA
     Dosage: 25 MG, 1X/DAY
  2. CLONIDINE [Concomitant]
  3. BENADRYL [Concomitant]
     Dosage: 50 MG WITH EACH TORISEL TREATMENT
     Dates: start: 20091102
  4. ZOCOR [Concomitant]
  5. LASIX [Concomitant]
  6. LISINOPRIL [Concomitant]
  7. FLEXERIL [Concomitant]
     Dosage: UNK

REACTIONS (4)
  - DISEASE PROGRESSION [None]
  - FATIGUE [None]
  - METASTATIC RENAL CELL CARCINOMA [None]
  - BLOOD PRESSURE INCREASED [None]
